FAERS Safety Report 7899530-X (Version None)
Quarter: 2011Q4

REPORT INFORMATION
  Report Type: 
  Country: None (occurrence: None)
  Receive Date: 20111107
  Receipt Date: 20110915
  Transmission Date: 20120403
  Serious: No
  Sender: FDA-Public Use
  Company Number: US-AMGEN-USASP2011047635

PATIENT
  Age: 52 Year
  Sex: Female
  Weight: 158.73 kg

DRUGS (4)
  1. MULTIVITAMIN AND MINERAL [Concomitant]
  2. SYNTHROID [Concomitant]
     Dosage: 15 MUG, UNK
  3. NORVASC [Concomitant]
     Dosage: 5 MG, UNK
  4. ENBREL [Suspect]
     Indication: PRODUCT USED FOR UNKNOWN INDICATION
     Dosage: 50 MG, QWK
     Route: 058

REACTIONS (1)
  - BRONCHITIS [None]
